FAERS Safety Report 15310830 (Version 1)
Quarter: 2018Q3

REPORT INFORMATION
  Report Type: Spontaneous
  Country: US (occurrence: US)
  Receive Date: 20180813
  Receipt Date: 20180813
  Transmission Date: 20181010
  Serious: No
  Sender: FDA-Public Use
  Company Number: None

PATIENT
  Age: 41 Year
  Sex: Female
  Weight: 56.25 kg

DRUGS (7)
  1. BENADRYL [Concomitant]
     Active Substance: DIPHENHYDRAMINE HYDROCHLORIDE
  2. XANAX [Concomitant]
     Active Substance: ALPRAZOLAM
  3. AIMOVIG [Suspect]
     Active Substance: ERENUMAB-AOOE
     Indication: MIGRAINE
     Dosage: ?          QUANTITY:1  INJECTION 1 SHOT PER MONTH
     Route: 030
     Dates: start: 20180808, end: 20180808
  4. ALLEGRA [Concomitant]
     Active Substance: FEXOFENADINE HYDROCHLORIDE
  5. CELEXA [Concomitant]
     Active Substance: CITALOPRAM HYDROBROMIDE
  6. POTASSIUM [Concomitant]
     Active Substance: POTASSIUM
  7. TOPAMAX [Concomitant]
     Active Substance: TOPIRAMATE

REACTIONS (8)
  - Condition aggravated [None]
  - Anxiety [None]
  - Abnormal dreams [None]
  - Muscle disorder [None]
  - Lethargy [None]
  - Migraine [None]
  - Tremor [None]
  - Hallucination [None]

NARRATIVE: CASE EVENT DATE: 20180810
